FAERS Safety Report 24029044 (Version 1)
Quarter: 2024Q2

REPORT INFORMATION
  Report Type: Spontaneous
  Country: US (occurrence: None)
  Receive Date: 20240627
  Receipt Date: 20240627
  Transmission Date: 20240716
  Serious: Yes (Other)
  Sender: FDA-Public Use
  Company Number: None

PATIENT
  Age: 70 Year
  Sex: Male

DRUGS (1)
  1. YESCARTA [Suspect]
     Active Substance: AXICABTAGENE CILOLEUCEL
     Indication: Acute myeloid leukaemia
     Route: 042
     Dates: start: 20180514, end: 20180514

REACTIONS (10)
  - Lymphocyte adoptive therapy [None]
  - Pancytopenia [None]
  - Dyspnoea [None]
  - Cough [None]
  - Red blood cell transfusion [None]
  - Platelet transfusion [None]
  - Acute myeloid leukaemia [None]
  - Aspiration bone marrow abnormal [None]
  - Karyotype analysis abnormal [None]
  - Cytogenetic abnormality [None]

NARRATIVE: CASE EVENT DATE: 20240315
